FAERS Safety Report 14567769 (Version 1)
Quarter: 2018Q1

REPORT INFORMATION
  Report Type: Spontaneous
  Country: DK (occurrence: DK)
  Receive Date: 20180223
  Receipt Date: 20180223
  Transmission Date: 20180509
  Serious: Yes (Hospitalization)
  Sender: FDA-Public Use
  Company Number: DK-ABBVIE-18S-044-2266318-00

PATIENT
  Age: 61 Year
  Sex: Male
  Weight: 86 kg

DRUGS (2)
  1. VIEKIRAX [Suspect]
     Active Substance: OMBITASVIR\PARITAPREVIR\RITONAVIR
     Indication: CHRONIC HEPATITIS C
     Dosage: STYRKE: 12,5+75+50 MG
     Route: 048
     Dates: start: 20180104, end: 20180126
  2. EXVIERA [Suspect]
     Active Substance: DASABUVIR
     Indication: CHRONIC HEPATITIS C
     Dosage: STYRKE: 250 MG
     Route: 048
     Dates: start: 20180104, end: 20180126

REACTIONS (1)
  - Nephropathy [Unknown]

NARRATIVE: CASE EVENT DATE: 2018
